FAERS Safety Report 7904164-4 (Version None)
Quarter: 2011Q4

REPORT INFORMATION
  Report Type: 
  Country: None (occurrence: None)
  Receive Date: 20111109
  Receipt Date: 20111107
  Transmission Date: 20120403
  Serious: Yes (Hospitalization)
  Sender: FDA-Public Use
  Company Number: DK-PFIZER INC-2011268801

PATIENT
  Age: 61 Year
  Sex: Male
  Weight: 66 kg

DRUGS (3)
  1. SUNITINIB MALATE [Suspect]
     Dosage: 37.5 MG, UNK
     Dates: start: 20100216
  2. SUNITINIB MALATE [Suspect]
     Dosage: 25 MG, UNK
     Dates: start: 20100330, end: 20100422
  3. SUNITINIB MALATE [Suspect]
     Indication: METASTATIC RENAL CELL CARCINOMA
     Dosage: 50 MG, 1X/DAY IN 18 DAYS THEN PAUSE IN 36 DAYS
     Dates: start: 20091112

REACTIONS (3)
  - PERFORMANCE STATUS DECREASED [None]
  - NAUSEA [None]
  - PYREXIA [None]
